FAERS Safety Report 10178822 (Version 1)
Quarter: 2014Q2

REPORT INFORMATION
  Report Type: Spontaneous
  Country: JP (occurrence: JP)
  Receive Date: 20140519
  Receipt Date: 20140519
  Transmission Date: 20141212
  Serious: Yes (Other)
  Sender: FDA-Public Use
  Company Number: JP-009507513-1405JPN008839

PATIENT
  Age: 51 Year
  Sex: Female

DRUGS (1)
  1. PREMINENT TABLETS [Suspect]
     Dosage: DAILY DOSAGE UNKNOWN
     Route: 048
     Dates: start: 201306, end: 201307

REACTIONS (2)
  - Drug-induced liver injury [Unknown]
  - Drug eruption [Unknown]
